FAERS Safety Report 18456135 (Version 3)
Quarter: 2021Q1

REPORT INFORMATION
  Report Type: Report from Study
  Country: US (occurrence: US)
  Receive Date: 20201103
  Receipt Date: 20210311
  Transmission Date: 20210419
  Serious: Yes (Death, Hospitalization, Other)
  Sender: FDA-Public Use
  Company Number: US-BAUSCH-BL-2020-031795

PATIENT
  Age: 79 Year
  Sex: Male

DRUGS (2)
  1. XIFAXAN [Suspect]
     Active Substance: RIFAXIMIN
     Indication: HEPATIC CIRRHOSIS
     Dosage: STARTED ON 2 YEARS AGO
     Route: 048
     Dates: start: 20171214, end: 2020
  2. XIFAXAN [Suspect]
     Active Substance: RIFAXIMIN
     Indication: HEPATIC ENCEPHALOPATHY PROPHYLAXIS

REACTIONS (10)
  - Gastrointestinal anastomotic leak [Unknown]
  - Rash [Unknown]
  - Failure to thrive [Fatal]
  - Erythema [Unknown]
  - Gastrointestinal inflammation [Unknown]
  - Intestinal obstruction [Unknown]
  - Abdominal mass [Unknown]
  - Tenderness [Unknown]
  - Gastrointestinal disorder [Unknown]
  - Therapy interrupted [Unknown]

NARRATIVE: CASE EVENT DATE: 202005
